FAERS Safety Report 19166626 (Version 2)
Quarter: 2021Q2

REPORT INFORMATION
  Report Type: Report from Study
  Country: FR (occurrence: FR)
  Receive Date: 20210421
  Receipt Date: 20210527
  Transmission Date: 20210717
  Serious: Yes (Hospitalization, Other)
  Sender: FDA-Public Use
  Company Number: FR-BRISTOL-MYERS SQUIBB COMPANY-BMS-2021-037012

PATIENT
  Age: 53 Year
  Sex: Male
  Weight: 69 kg

DRUGS (6)
  1. NIVOLUMAB [Suspect]
     Active Substance: NIVOLUMAB
     Indication: BLADDER CANCER
     Dosage: 360 MILLIGRAM
     Route: 042
     Dates: start: 20210217
  2. LINRODOSTAT MESYLATE [Suspect]
     Active Substance: LINRODOSTAT MESYLATE
     Indication: BLADDER CANCER
     Dosage: 1 TAB
     Route: 065
     Dates: start: 20210217
  3. CISPLATIN. [Suspect]
     Active Substance: CISPLATIN
     Indication: BLADDER CANCER
     Dosage: 131 MILLIGRAM
     Route: 065
     Dates: start: 20210217
  4. COVID?19 VACCINE NOS. [Concomitant]
     Active Substance: COVID-19 VACCINE NOS
     Indication: PROPHYLAXIS
     Dosage: FIRST DOSE
     Route: 065
     Dates: start: 20210318
  5. COVID?19 VACCINE NOS. [Concomitant]
     Active Substance: COVID-19 VACCINE NOS
     Dosage: SECOND DOSE
     Route: 065
     Dates: start: 20210407
  6. GEMCITABINE HYDROCHLORIDE. [Suspect]
     Active Substance: GEMCITABINE HYDROCHLORIDE
     Indication: BLADDER CANCER
     Dosage: 1860 MILLIGRAM
     Route: 065
     Dates: start: 20210217

REACTIONS (1)
  - Febrile neutropenia [Recovered/Resolved]

NARRATIVE: CASE EVENT DATE: 20210413
